FAERS Safety Report 9981681 (Version 2)
Quarter: 2014Q1

REPORT INFORMATION
  Report Type: Report from Study
  Country: US (occurrence: US)
  Receive Date: 20140307
  Receipt Date: 20140307
  Transmission Date: 20141002
  Serious: No
  Sender: FDA-Public Use
  Company Number: US-ABBVIE-13P-163-1171674-00

PATIENT
  Age: 38 Year
  Sex: Female
  Weight: 81.27 kg

DRUGS (32)
  1. HUMIRA [Suspect]
     Indication: CROHN^S DISEASE
     Dates: start: 2003
  2. HUMIRA [Suspect]
     Indication: RHEUMATOID ARTHRITIS
     Route: 058
     Dates: start: 20131119, end: 20131119
  3. HUMIRA [Suspect]
     Route: 058
     Dates: start: 20131203, end: 20131204
  4. BENADRYL [Suspect]
     Indication: PRODUCT USED FOR UNKNOWN INDICATION
  5. AMBIEN [Concomitant]
     Indication: PRODUCT USED FOR UNKNOWN INDICATION
     Dosage: AT BEDTIME
     Route: 048
  6. TRAZODONE [Concomitant]
     Indication: PRODUCT USED FOR UNKNOWN INDICATION
     Dosage: AT BEDTIME
     Route: 048
  7. EXALGO [Concomitant]
     Indication: PAIN
     Dosage: AT BEDTIME
     Route: 048
  8. ACIPHEX [Concomitant]
     Indication: PRODUCT USED FOR UNKNOWN INDICATION
  9. XANAX [Concomitant]
     Indication: PRODUCT USED FOR UNKNOWN INDICATION
  10. FAMCICLOVIR [Concomitant]
     Indication: PRODUCT USED FOR UNKNOWN INDICATION
  11. DICYCLOMINE [Concomitant]
     Indication: PRODUCT USED FOR UNKNOWN INDICATION
  12. COMPAZINE [Concomitant]
     Indication: PRODUCT USED FOR UNKNOWN INDICATION
  13. DILAUDID [Concomitant]
     Indication: PAIN
     Dosage: 4 MG EVERY 1-3 HOURS AS NEEDED
  14. PERCOCET [Concomitant]
     Indication: PRODUCT USED FOR UNKNOWN INDICATION
  15. TRAMADOL [Concomitant]
     Indication: PRODUCT USED FOR UNKNOWN INDICATION
  16. RELPAX [Concomitant]
     Indication: PRODUCT USED FOR UNKNOWN INDICATION
  17. ZOVIRAX [Concomitant]
     Indication: PRODUCT USED FOR UNKNOWN INDICATION
  18. ZYRTEC [Concomitant]
     Indication: PRODUCT USED FOR UNKNOWN INDICATION
  19. VALTREX [Concomitant]
     Indication: PROPHYLAXIS
  20. VALTREX [Concomitant]
     Indication: ORAL HERPES
  21. ACIPHEX [Concomitant]
     Indication: PRODUCT USED FOR UNKNOWN INDICATION
  22. XANAX [Concomitant]
     Indication: PRODUCT USED FOR UNKNOWN INDICATION
  23. BENTYL [Concomitant]
     Indication: PRODUCT USED FOR UNKNOWN INDICATION
  24. NAPROXEN SODIUM [Concomitant]
     Indication: BACK PAIN
     Dosage: FIRST THREE DAYS OF PERIOD
  25. NAPROXEN SODIUM [Concomitant]
     Dosage: EVERY DAY
  26. COMPAZINE [Concomitant]
     Indication: PRODUCT USED FOR UNKNOWN INDICATION
     Dosage: 10MG EVERY SIX HOURS AS NEEDED
  27. COMPAZINE [Concomitant]
  28. PERCOCET [Concomitant]
     Indication: PAIN
     Dosage: 10/325 MG
  29. TRAMADOL HCL [Concomitant]
     Indication: MIGRAINE
     Dosage: AS NEEDED
  30. RELPAX [Concomitant]
     Indication: PRODUCT USED FOR UNKNOWN INDICATION
  31. FAMVIR [Concomitant]
     Indication: ORAL HERPES
     Dosage: THREE TABLETS AT THE ONSET OF A COLD SORE
  32. ZOVIRAX [Concomitant]
     Indication: ORAL HERPES
     Dosage: APPLY TO AFFECTED AREAS UNTIL COLD SORES WENT AWAY

REACTIONS (27)
  - Migraine [Unknown]
  - Injection site bruising [Unknown]
  - Chest discomfort [Not Recovered/Not Resolved]
  - Painful respiration [Not Recovered/Not Resolved]
  - Chest discomfort [Not Recovered/Not Resolved]
  - Nasal congestion [Not Recovered/Not Resolved]
  - Injection site erythema [Not Recovered/Not Resolved]
  - Injection site warmth [Not Recovered/Not Resolved]
  - Injection site pain [Not Recovered/Not Resolved]
  - Drug ineffective [Not Recovered/Not Resolved]
  - Back pain [Not Recovered/Not Resolved]
  - Gait disturbance [Not Recovered/Not Resolved]
  - Urticaria [Not Recovered/Not Resolved]
  - Injection site discolouration [Not Recovered/Not Resolved]
  - Injection site erythema [Not Recovered/Not Resolved]
  - Chest pain [Not Recovered/Not Resolved]
  - Dyspnoea [Not Recovered/Not Resolved]
  - Dizziness [Not Recovered/Not Resolved]
  - Hypoaesthesia [Not Recovered/Not Resolved]
  - Injection site pruritus [Not Recovered/Not Resolved]
  - Injection site warmth [Not Recovered/Not Resolved]
  - Injection site mass [Not Recovered/Not Resolved]
  - Contusion [Not Recovered/Not Resolved]
  - Dyspnoea [Not Recovered/Not Resolved]
  - Immune system disorder [Not Recovered/Not Resolved]
  - Asthenia [Not Recovered/Not Resolved]
  - Hypersomnia [Not Recovered/Not Resolved]
